FAERS Safety Report 17855410 (Version 1)
Quarter: 2020Q2

REPORT INFORMATION
  Report Type: Report from Study
  Country: DE (occurrence: DE)
  Receive Date: 20200603
  Receipt Date: 20200603
  Transmission Date: 20200714
  Serious: Yes (Hospitalization, Other)
  Sender: FDA-Public Use
  Company Number: DE-TEVA-2020-DE-1227259

PATIENT
  Sex: Female

DRUGS (3)
  1. COPAXONE [Suspect]
     Active Substance: GLATIRAMER ACETATE
     Indication: MULTIPLE SCLEROSIS
     Route: 058
     Dates: start: 201902
  2. DULOXETIN [Concomitant]
     Active Substance: DULOXETINE
     Dosage: 20 MILLIGRAM DAILY; IN THE MORNING
     Dates: start: 20190213
  3. DULOXETIN [Concomitant]
     Active Substance: DULOXETINE
     Dosage: 30 MILLIGRAM DAILY; IN THE MORNING
     Route: 065
     Dates: end: 20190213

REACTIONS (4)
  - Pain in extremity [Unknown]
  - Skin reaction [Unknown]
  - Lipoedema [Unknown]
  - Weight increased [Unknown]

NARRATIVE: CASE EVENT DATE: 2019
